FAERS Safety Report 23873712 (Version 3)
Quarter: 2024Q2

REPORT INFORMATION
  Report Type: Report from Study
  Country: ES (occurrence: ES)
  Receive Date: 20240520
  Receipt Date: 20240523
  Transmission Date: 20240716
  Serious: Yes (Life-Threatening)
  Sender: FDA-Public Use
  Company Number: ES-Eisai-EC-2024-165923

PATIENT
  Age: 77 Year
  Sex: Male
  Weight: 56.8 kg

DRUGS (10)
  1. LENVATINIB [Suspect]
     Active Substance: LENVATINIB
     Indication: Small cell lung cancer extensive stage
     Dosage: FREQUENCY UNKNOWN
     Route: 048
     Dates: start: 20240502, end: 20240504
  2. CARBOPLATIN [Suspect]
     Active Substance: CARBOPLATIN
     Indication: Small cell lung cancer extensive stage
     Dosage: FREQUENCY UNKNOWN
     Route: 042
     Dates: start: 20240502
  3. ETOPOSIDE [Suspect]
     Active Substance: ETOPOSIDE
     Indication: Small cell lung cancer extensive stage
     Dosage: FREQUENCY UNKNOWN
     Route: 042
     Dates: start: 20240502
  4. PEMBROLIZUMAB [Suspect]
     Active Substance: PEMBROLIZUMAB
     Indication: Small cell lung cancer extensive stage
     Dosage: FREQUENCY UNKNOWN
     Route: 042
     Dates: start: 20240502
  5. PIPERACILLIN [Concomitant]
     Active Substance: PIPERACILLIN
     Dates: start: 20240504, end: 20240513
  6. FLUCONAZOLE [Concomitant]
     Active Substance: FLUCONAZOLE
     Dates: start: 20240504, end: 20240512
  7. METAMIZOLE [Concomitant]
     Active Substance: METAMIZOLE
     Dates: start: 20240504, end: 20240508
  8. TRAMADOL [Concomitant]
     Active Substance: TRAMADOL\TRAMADOL HYDROCHLORIDE
     Dates: start: 20240504, end: 20240504
  9. MORPHINE [Concomitant]
     Active Substance: MORPHINE
     Dates: start: 20240504, end: 20240506
  10. ACETAMINOPHEN [Concomitant]
     Active Substance: ACETAMINOPHEN
     Dates: start: 20240504, end: 20240509

REACTIONS (1)
  - Peptic ulcer perforation [Recovered/Resolved]

NARRATIVE: CASE EVENT DATE: 20240504
